FAERS Safety Report 7450547-9 (Version None)
Quarter: 2011Q2

REPORT INFORMATION
  Report Type: 
  Country: None (occurrence: None)
  Receive Date: 20110429
  Receipt Date: 20110429
  Transmission Date: 20111010
  Serious: No
  Sender: FDA-Public Use
  Company Number: None

PATIENT

DRUGS (1)
  1. LEVAQUIN [Suspect]
     Indication: PNEUMONIA
     Dosage: 10 DAYS @ 500 MG PER DAY

REACTIONS (3)
  - ARTHRITIS [None]
  - HYPERSENSITIVITY [None]
  - ROTATOR CUFF SYNDROME [None]
